FAERS Safety Report 6947856-6 (Version None)
Quarter: 2010Q3

REPORT INFORMATION
  Report Type: 
  Country: None (occurrence: None)
  Receive Date: 20100828
  Receipt Date: 20091005
  Transmission Date: 20110219
  Serious: No
  Sender: FDA-Public Use
  Company Number: US-ABBOTT-09P-163-0601427-00

PATIENT
  Sex: Male
  Weight: 88.53 kg

DRUGS (4)
  1. NIASPAN [Suspect]
     Indication: BLOOD CHOLESTEROL INCREASED
     Dates: start: 20070101, end: 20080101
  2. NIASPAN [Suspect]
     Dates: start: 20080101
  3. ZOCOR [Concomitant]
     Indication: BLOOD CHOLESTEROL INCREASED
  4. DIOVAN HCT [Concomitant]
     Indication: HYPERTENSION

REACTIONS (2)
  - FLUSHING [None]
  - INCORRECT DOSE ADMINISTERED [None]
